FAERS Safety Report 5471339-6 (Version None)
Quarter: 2007Q3

REPORT INFORMATION
  Report Type: 
  Country: None (occurrence: None)
  Receive Date: 20070928
  Receipt Date: 20060817
  Transmission Date: 20080115
  Serious: No
  Sender: FDA-Public Use
  Company Number: US-BRISTOL-MYERS SQUIBB COMPANY-13481148

PATIENT
  Sex: Female

DRUGS (1)
  1. DEFINITY [Suspect]
     Dates: start: 20060816

REACTIONS (4)
  - BLOOD PRESSURE DECREASED [None]
  - CHEST PAIN [None]
  - FLUSHING [None]
  - NERVOUSNESS [None]
